FAERS Safety Report 13355984 (Version 2)
Quarter: 2017Q2

REPORT INFORMATION
  Report Type: Spontaneous
  Country: UA (occurrence: UA)
  Receive Date: 20170321
  Receipt Date: 20170413
  Transmission Date: 20170830
  Serious: Yes (Hospitalization, Other)
  Sender: FDA-Public Use
  Company Number: UA-ASTRAZENECA-2017SE21703

PATIENT
  Age: 63 Year
  Sex: Male
  Weight: 75 kg

DRUGS (6)
  1. CLEXANE [Suspect]
     Active Substance: ENOXAPARIN SODIUM
     Indication: ACUTE MYOCARDIAL INFARCTION
     Route: 058
  2. CRESTOR [Concomitant]
     Active Substance: ROSUVASTATIN CALCIUM
  3. HARTIL [Concomitant]
  4. BRILINTA [Suspect]
     Active Substance: TICAGRELOR
     Indication: ACUTE MYOCARDIAL INFARCTION
     Route: 048
     Dates: start: 201607
  5. ACETYLSALICYLIC ACID [Suspect]
     Active Substance: ASPIRIN
     Indication: ACUTE MYOCARDIAL INFARCTION
     Route: 065
     Dates: start: 201607
  6. LIPRIMAR [Suspect]
     Active Substance: ATORVASTATIN CALCIUM
     Indication: ACUTE MYOCARDIAL INFARCTION
     Route: 065
     Dates: start: 201607

REACTIONS (6)
  - Gastric ulcer [Recovering/Resolving]
  - Pain [Unknown]
  - Acute myocardial infarction [Unknown]
  - Coronary artery disease [Unknown]
  - Haemoglobin decreased [Unknown]
  - Gastric haemorrhage [Unknown]

NARRATIVE: CASE EVENT DATE: 201607
